FAERS Safety Report 13749592 (Version 1)
Quarter: 2017Q3

REPORT INFORMATION
  Report Type: Spontaneous
  Country: US (occurrence: US)
  Receive Date: 20170713
  Receipt Date: 20170713
  Transmission Date: 20171127
  Serious: Yes (Death)
  Sender: FDA-Public Use
  Company Number: None

PATIENT
  Age: 54 Year
  Sex: Female
  Weight: 96.75 kg

DRUGS (9)
  1. PAXIL [Concomitant]
     Active Substance: PAROXETINE HYDROCHLORIDE
  2. TRAMADOL. [Concomitant]
     Active Substance: TRAMADOL
  3. MIRAPEX [Concomitant]
     Active Substance: PRAMIPEXOLE DIHYDROCHLORIDE
  4. MORPHINE [Concomitant]
     Active Substance: MORPHINE
  5. LASIX [Concomitant]
     Active Substance: FUROSEMIDE
  6. ELAVIL [Concomitant]
     Active Substance: AMITRIPTYLINE HYDROCHLORIDE
  7. PREDNISONE. [Concomitant]
     Active Substance: PREDNISONE
  8. GILOTRIF [Suspect]
     Active Substance: AFATINIB
     Indication: LUNG NEOPLASM MALIGNANT
     Dosage: ?          QUANTITY:1 TABLET(S);?
     Route: 048
     Dates: start: 20160301, end: 20160801
  9. HYDROCODONE [Concomitant]
     Active Substance: HYDROCODONE

REACTIONS (2)
  - Myocardial infarction [None]
  - Dyspnoea [None]

NARRATIVE: CASE EVENT DATE: 20160929
